FAERS Safety Report 7561379-5 (Version None)
Quarter: 2011Q2

REPORT INFORMATION
  Report Type: 
  Country: None (occurrence: None)
  Receive Date: 20110621
  Receipt Date: 20101014
  Transmission Date: 20111010
  Serious: No
  Sender: FDA-Public Use
  Company Number: US-ASTRAZENECA-2010SE48624

PATIENT
  Sex: Female

DRUGS (2)
  1. LISINOPRIL [Concomitant]
  2. PULMICORT FLEXHALER [Suspect]
     Indication: RESPIRATORY DISORDER
     Route: 055
     Dates: start: 20101013

REACTIONS (3)
  - HEADACHE [None]
  - RESPIRATORY DISORDER [None]
  - DRUG DOSE OMISSION [None]
